FAERS Safety Report 6801040-5 (Version None)
Quarter: 2010Q2

REPORT INFORMATION
  Report Type: 
  Country: None (occurrence: None)
  Receive Date: 20100629
  Receipt Date: 20100617
  Transmission Date: 20101027
  Serious: No
  Sender: FDA-Public Use
  Company Number: US-B.I. PHARMACEUTICALS,INC./RIDGEFIELD-2010-BP-06222BP

PATIENT
  Sex: Male

DRUGS (10)
  1. SPIRIVA [Suspect]
     Indication: CHRONIC OBSTRUCTIVE PULMONARY DISEASE
     Dosage: 18 MCG
     Route: 055
     Dates: start: 20050101
  2. OXYGEN [Concomitant]
     Indication: CHRONIC OBSTRUCTIVE PULMONARY DISEASE
  3. ADVAIR DISKUS 100/50 [Concomitant]
     Indication: CHRONIC OBSTRUCTIVE PULMONARY DISEASE
  4. ALBUTEROL [Concomitant]
     Indication: CHRONIC OBSTRUCTIVE PULMONARY DISEASE
  5. PREDNISONE [Concomitant]
     Indication: CHRONIC OBSTRUCTIVE PULMONARY DISEASE
     Dosage: 20 MG
  6. VALIUM [Concomitant]
     Indication: BACK PAIN
     Dosage: 30 MG
  7. METHADONE [Concomitant]
     Indication: BACK PAIN
     Dosage: 80 MG
  8. FLOVENT [Concomitant]
  9. PROVENTIL [Concomitant]
  10. PROAIR HFA [Concomitant]

REACTIONS (7)
  - COUGH [None]
  - DYSPNOEA [None]
  - FLUID RETENTION [None]
  - INCREASED BRONCHIAL SECRETION [None]
  - OBSTRUCTIVE AIRWAYS DISORDER [None]
  - OEDEMA PERIPHERAL [None]
  - SWELLING FACE [None]
